FAERS Safety Report 25364107 (Version 2)
Quarter: 2025Q2

REPORT INFORMATION
  Report Type: Spontaneous
  Country: JP (occurrence: JP)
  Receive Date: 20250527
  Receipt Date: 20250618
  Transmission Date: 20250716
  Serious: Yes (Hospitalization)
  Sender: JOHNSON AND JOHNSON
  Company Number: JP-JNJFOC-20250274700

PATIENT
  Age: 69 Year
  Sex: Female

DRUGS (3)
  1. HALOMONTH [Suspect]
     Active Substance: HALOPERIDOL DECANOATE
     Indication: Schizophrenia
     Route: 030
     Dates: start: 2008, end: 20250203
  2. RISPERDAL [Concomitant]
     Active Substance: RISPERIDONE
     Indication: Schizophrenia
     Dosage: AFTER BREAKFAST AND DINNER, AT BEDTIME
     Route: 048
     Dates: start: 20250204, end: 20250224
  3. RISPERDAL [Concomitant]
     Active Substance: RISPERIDONE
     Dosage: AFTER BREAKFAST AND DINNER
     Route: 048
     Dates: start: 20250225

REACTIONS (3)
  - Hospitalisation [Unknown]
  - Tremor [Recovered/Resolved]
  - Salivary hypersecretion [Recovering/Resolving]

NARRATIVE: CASE EVENT DATE: 20250101
